FAERS Safety Report 10484528 (Version 2)
Quarter: 2014Q4

REPORT INFORMATION
  Report Type: Spontaneous
  Country: US (occurrence: US)
  Receive Date: 20140930
  Receipt Date: 20141020
  Transmission Date: 20150528
  Serious: Yes (Other)
  Sender: FDA-Public Use
  Company Number: US-PFIZER INC-2014268105

PATIENT
  Age: 60 Year
  Sex: Male
  Weight: 83.9 kg

DRUGS (5)
  1. CELECOXIB. [Suspect]
     Active Substance: CELECOXIB
     Indication: OSTEOARTHRITIS
     Dosage: 200 MG, DAILY
     Route: 048
     Dates: start: 201402
  2. LODINE [Suspect]
     Active Substance: ETODOLAC
     Indication: OSTEOARTHRITIS
     Dosage: 300 MG, 3X/DAY
     Dates: start: 20140617, end: 20140619
  3. NORTRIPTYLINE [Concomitant]
     Active Substance: NORTRIPTYLINE
     Indication: PAIN
     Dosage: 50 MG, (QHS)
     Dates: start: 20131025
  4. MOBIC [Suspect]
     Active Substance: MELOXICAM
     Indication: OSTEOARTHRITIS
     Dosage: 15 MG, DAILY
     Route: 048
     Dates: start: 20140613, end: 20140615
  5. HYDROCHLOROTHIAZIDE, LISINOPRIL [Concomitant]
     Indication: HYPERTENSION
     Dosage: (20/25MG X DAILY)
     Dates: start: 20070818

REACTIONS (11)
  - Dry mouth [Recovered/Resolved]
  - Vomiting [Recovered/Resolved]
  - Dysphagia [Recovered/Resolved]
  - Drug ineffective [Unknown]
  - Arthralgia [Unknown]
  - Arthropathy [Unknown]
  - Dyspepsia [Recovered/Resolved]
  - Malaise [Recovered/Resolved]
  - Swollen tongue [Recovered/Resolved]
  - Musculoskeletal stiffness [Unknown]
  - Headache [Recovered/Resolved]

NARRATIVE: CASE EVENT DATE: 2014
